FAERS Safety Report 8485631-4 (Version None)
Quarter: 2012Q3

REPORT INFORMATION
  Report Type: 
  Country: None (occurrence: None)
  Receive Date: 20120703
  Receipt Date: 20120622
  Transmission Date: 20120928
  Serious: Yes (Hospitalization)
  Sender: FDA-Public Use
  Company Number: DE-JNJFOC-20120613024

PATIENT

DRUGS (2)
  1. ZYTIGA [Suspect]
     Route: 048
  2. ZYTIGA [Suspect]
     Indication: PRODUCT USED FOR UNKNOWN INDICATION
     Route: 048
     Dates: start: 20110901

REACTIONS (3)
  - PROSTATIC SPECIFIC ANTIGEN INCREASED [None]
  - ABDOMINAL NEOPLASM [None]
  - ILEUS [None]
